FAERS Safety Report 21444178 (Version 1)
Quarter: 2022Q4

REPORT INFORMATION
  Report Type: Spontaneous
  Country: IT (occurrence: IT)
  Receive Date: 20221012
  Receipt Date: 20221012
  Transmission Date: 20230113
  Serious: Yes (Other)
  Sender: FDA-Public Use
  Company Number: IT-JNJFOC-20221000369

PATIENT
  Age: 27 Year
  Sex: Male
  Weight: 65 kg

DRUGS (1)
  1. HALDOL [Suspect]
     Active Substance: HALOPERIDOL
     Indication: Product used for unknown indication
     Dosage: 2 MG /ML ORAL DROPS, BOTTLE SOLUTION OF 30ML
     Route: 048

REACTIONS (3)
  - Dystonia [Unknown]
  - Intentional product misuse [Unknown]
  - Dyskinesia [Unknown]
